FAERS Safety Report 17786455 (Version 2)
Quarter: 2020Q2

REPORT INFORMATION
  Report Type: Spontaneous
  Country: GR (occurrence: GR)
  Receive Date: 20200514
  Receipt Date: 20200515
  Transmission Date: 20200714
  Serious: Yes (Hospitalization)
  Sender: FDA-Public Use
  Company Number: GR-B.I. PHARMACEUTICALS,INC./RIDGEFIELD-2020-BI-023676

PATIENT
  Age: 82 Year
  Sex: Female

DRUGS (2)
  1. PRADAXA [Suspect]
     Active Substance: DABIGATRAN ETEXILATE MESYLATE
     Indication: ATRIAL FIBRILLATION
  2. PRADAXA [Suspect]
     Active Substance: DABIGATRAN ETEXILATE MESYLATE
     Indication: CEREBROVASCULAR ACCIDENT PROPHYLAXIS
     Route: 065

REACTIONS (8)
  - Asthenia [Unknown]
  - Abdominal pain upper [Recovered/Resolved]
  - Dyspnoea exertional [Recovered/Resolved]
  - Biliary anastomosis complication [Recovered/Resolved]
  - Vertigo [Unknown]
  - Haemoglobin abnormal [Unknown]
  - Biliary anastomosis [Recovered/Resolved]
  - Haematocrit decreased [Unknown]
